FAERS Safety Report 16174211 (Version 1)
Quarter: 2019Q2

REPORT INFORMATION
  Report Type: Spontaneous
  Country: BE (occurrence: BE)
  Receive Date: 20190409
  Receipt Date: 20190409
  Transmission Date: 20190711
  Serious: Yes (Hospitalization, Other)
  Sender: FDA-Public Use
  Company Number: PHHY2019BE076276

PATIENT
  Age: 50 Year
  Sex: Female

DRUGS (3)
  1. CARBOPLATIN. [Suspect]
     Active Substance: CARBOPLATIN
     Indication: OVARIAN ENDOMETRIOID CARCINOMA
     Dosage: UNK
     Route: 042
  2. AVASTIN [Suspect]
     Active Substance: BEVACIZUMAB
     Indication: OVARIAN ENDOMETRIOID CARCINOMA
     Dosage: UNK
     Route: 042
  3. TAXOL [Suspect]
     Active Substance: PACLITAXEL
     Indication: OVARIAN ENDOMETRIOID CARCINOMA
     Dosage: UNK
     Route: 042

REACTIONS (5)
  - Epilepsy [Unknown]
  - Off label use [Unknown]
  - Malignant hypertension [Unknown]
  - Headache [Unknown]
  - Posterior reversible encephalopathy syndrome [Unknown]

NARRATIVE: CASE EVENT DATE: 20180925
